FAERS Safety Report 15334552 (Version 1)
Quarter: 2018Q3

REPORT INFORMATION
  Report Type: Spontaneous
  Country: US (occurrence: US)
  Receive Date: 20180830
  Receipt Date: 20180830
  Transmission Date: 20181010
  Serious: Yes (Hospitalization, Other)
  Sender: FDA-Public Use
  Company Number: US-JNJFOC-20180837830

PATIENT
  Age: 51 Year
  Sex: Male

DRUGS (1)
  1. INVOKAMET [Suspect]
     Active Substance: CANAGLIFLOZIN\METFORMIN HYDROCHLORIDE
     Indication: TYPE 2 DIABETES MELLITUS
     Route: 048
     Dates: start: 201602

REACTIONS (4)
  - Osteomyelitis [Unknown]
  - Cellulitis [Unknown]
  - Amputation [Unknown]
  - Diabetic foot [Unknown]

NARRATIVE: CASE EVENT DATE: 20160929
